FAERS Safety Report 12540209 (Version 2)
Quarter: 2016Q3

REPORT INFORMATION
  Report Type: Spontaneous
  Country: JP (occurrence: JP)
  Receive Date: 20160708
  Receipt Date: 20160726
  Transmission Date: 20161109
  Serious: Yes (Hospitalization, Other)
  Sender: FDA-Public Use
  Company Number: JP-PFIZER INC-2016330888

PATIENT
  Age: 64 Year
  Sex: Female
  Weight: 54 kg

DRUGS (51)
  1. ADRIACIN [Suspect]
     Active Substance: DOXORUBICIN HYDROCHLORIDE
     Indication: BREAST CANCER
     Dosage: 360 MG, DAILY
     Route: 041
     Dates: start: 20151221, end: 20151221
  2. ADRIACIN [Suspect]
     Active Substance: DOXORUBICIN HYDROCHLORIDE
     Dosage: 360 MG, DAILY
     Route: 041
     Dates: start: 20160104, end: 20160104
  3. G LASTA [Suspect]
     Active Substance: PEGFILGRASTIM
     Dosage: 3.6 MG, 1X/2WEEKS
     Route: 058
     Dates: start: 20160105, end: 20160105
  4. G LASTA [Suspect]
     Active Substance: PEGFILGRASTIM
     Dosage: 3.6 MG, 1X/2WEEKS
     Route: 058
     Dates: start: 20160202, end: 20160202
  5. G LASTA [Suspect]
     Active Substance: PEGFILGRASTIM
     Dosage: 3.6 MG, 1X/2WEEKS
     Route: 058
     Dates: start: 20160216, end: 20160216
  6. ISOTONIC SODIUM CHLORIDE SOLUTION [Concomitant]
     Active Substance: SODIUM CHLORIDE
     Dosage: 50ML, 1X/2WEEKS
     Route: 041
     Dates: start: 20151221, end: 20160201
  7. EMEND [Concomitant]
     Active Substance: APREPITANT
     Dosage: 80 MG, DAILY
     Route: 048
     Dates: start: 20160118, end: 20160119
  8. ALOSEN [Concomitant]
     Dosage: 5 MG, DAILY
     Route: 048
     Dates: start: 20160104, end: 20160110
  9. CRESTOR [Concomitant]
     Active Substance: ROSUVASTATIN CALCIUM
     Dosage: 2.5 MG, DAILY
     Route: 048
     Dates: start: 20160126, end: 20160305
  10. DECADRON [Concomitant]
     Active Substance: DEXAMETHASONE
     Dosage: 4 MG, 2X/DAY
     Route: 048
     Dates: start: 20160201, end: 20160203
  11. DECADRON [Concomitant]
     Active Substance: DEXAMETHASONE
     Dosage: 4 MG, 2X/DAY
     Route: 048
     Dates: start: 20160118, end: 20160120
  12. PRIMPERAN [Concomitant]
     Active Substance: METOCLOPRAMIDE HYDROCHLORIDE
     Dosage: 5 MG, 3X/DAY
     Route: 048
     Dates: start: 20151221, end: 20151225
  13. ALOSEN [Concomitant]
     Dosage: 5 MG, DAILY
     Route: 048
     Dates: start: 20151221, end: 20151227
  14. VOLTAREN [Concomitant]
     Active Substance: DICLOFENAC SODIUM
     Dosage: 50MG, 6X/DAY
     Route: 054
     Dates: start: 20151221, end: 20151221
  15. MUCOSTA [Concomitant]
     Active Substance: REBAMIPIDE
     Dosage: 100 MG, DAILY
     Route: 048
     Dates: start: 20160229, end: 20160305
  16. HIRUDOID [Concomitant]
     Active Substance: GLYCOSAMINOGLYCANS
     Dosage: 50G, FREQUENCY UNKNOWN
     Route: 061
     Dates: start: 20160215, end: 20160215
  17. G LASTA [Suspect]
     Active Substance: PEGFILGRASTIM
     Dosage: 3.6 MG, 1X/2WEEKS
     Route: 058
     Dates: start: 20160301, end: 20160301
  18. DECADRON [Concomitant]
     Active Substance: DEXAMETHASONE
     Dosage: 6.5999999MG, 1X/2WEEKS
     Route: 041
     Dates: start: 20151221, end: 20160229
  19. DECADRON [Concomitant]
     Active Substance: DEXAMETHASONE
     Dosage: 4 MG, 2X/DAY
     Route: 048
     Dates: start: 20151221, end: 20151223
  20. EMEND [Concomitant]
     Active Substance: APREPITANT
     Dosage: 80 MG, DAILY
     Route: 048
     Dates: start: 20151221, end: 20151222
  21. EMEND [Concomitant]
     Active Substance: APREPITANT
     Dosage: 80 MG, DAILY
     Route: 048
     Dates: start: 20160104, end: 20160105
  22. CARDENALIN [Concomitant]
     Active Substance: DOXAZOSIN MESYLATE
     Dosage: 2 MG, DAILY
     Route: 048
     Dates: start: 20151222, end: 20160111
  23. G LASTA [Suspect]
     Active Substance: PEGFILGRASTIM
     Indication: COLONY STIMULATING FACTOR PROPHYLAXIS
     Dosage: 3.6 MG, 1X/2WEEKS
     Route: 058
     Dates: start: 20151222, end: 20151222
  24. ENDOXAN [Suspect]
     Active Substance: CYCLOPHOSPHAMIDE
     Indication: BREAST CANCER
     Dosage: 3600 MG, DAILY
     Route: 041
     Dates: start: 20151221, end: 20151221
  25. DECADRON [Concomitant]
     Active Substance: DEXAMETHASONE
     Dosage: 4 MG, 2X/DAY
     Route: 048
     Dates: start: 20160215, end: 20160217
  26. NIFEDIPINE CR [Concomitant]
     Active Substance: NIFEDIPINE
     Dosage: 40 MG, DAILY
     Route: 048
     Dates: start: 20160126, end: 20160305
  27. LOXOPROFEN SODIUM HYDRATE [Concomitant]
     Active Substance: LOXOPROFEN SODIUM DIHYDRATE
     Dosage: 60 MG, DAILY
     Route: 048
     Dates: start: 20160229, end: 20160305
  28. ADRIACIN [Suspect]
     Active Substance: DOXORUBICIN HYDROCHLORIDE
     Dosage: 360 MG, DAILY
     Route: 041
     Dates: start: 20160118, end: 20160118
  29. DOCETAXEL. [Suspect]
     Active Substance: DOCETAXEL
     Dosage: 220 MG, UNK
     Route: 041
     Dates: start: 20160229, end: 20160229
  30. ENDOXAN [Suspect]
     Active Substance: CYCLOPHOSPHAMIDE
     Dosage: 3600 MG, DAILY
     Route: 041
     Dates: start: 20160118, end: 20160118
  31. GRANISETRON [Concomitant]
     Active Substance: GRANISETRON
     Dosage: 3MG, 1X/2WEEKS
     Route: 041
     Dates: start: 20151221, end: 20160201
  32. SEISHOKU [Concomitant]
     Active Substance: SODIUM CHLORIDE
     Dosage: 100ML, 1X/2WEEKS
     Route: 041
     Dates: start: 20160215, end: 20160229
  33. DECADRON [Concomitant]
     Active Substance: DEXAMETHASONE
     Dosage: 4 MG, 2X/DAY
     Route: 048
     Dates: start: 20160104, end: 20160106
  34. DECADRON [Concomitant]
     Active Substance: DEXAMETHASONE
     Dosage: 4 MG, 2X/DAY
     Route: 048
     Dates: start: 20160229, end: 20160302
  35. PRIMPERAN [Concomitant]
     Active Substance: METOCLOPRAMIDE HYDROCHLORIDE
     Dosage: 5 MG, 3X/DAY
     Route: 048
     Dates: start: 20160104, end: 20160108
  36. CIPROXAN [Concomitant]
     Active Substance: CIPROFLOXACIN
     Dosage: 200 MG, 3X/DAY
     Route: 048
     Dates: start: 20151221, end: 20151223
  37. LOXOPROFEN SODIUM HYDRATE [Concomitant]
     Active Substance: LOXOPROFEN SODIUM DIHYDRATE
     Dosage: 60 MG, DAILY
     Route: 048
     Dates: start: 20160215, end: 20160224
  38. ADRIACIN [Suspect]
     Active Substance: DOXORUBICIN HYDROCHLORIDE
     Dosage: 360 MG, DAILY
     Route: 041
     Dates: start: 20160201, end: 20160201
  39. DOCETAXEL. [Suspect]
     Active Substance: DOCETAXEL
     Dosage: 220 MG, UNK
     Route: 041
     Dates: start: 20160215
  40. ENDOXAN [Suspect]
     Active Substance: CYCLOPHOSPHAMIDE
     Dosage: 3600 MG, DAILY
     Route: 041
     Dates: start: 20160201, end: 20160201
  41. SEISHOKU [Concomitant]
     Active Substance: SODIUM CHLORIDE
     Dosage: 250ML, 1X/2WEEKS
     Route: 041
     Dates: start: 20151221, end: 20160229
  42. EMEND [Concomitant]
     Active Substance: APREPITANT
     Dosage: 80 MG, DAILY
     Route: 048
     Dates: start: 20160201, end: 20160202
  43. ALOSEN [Concomitant]
     Dosage: 5 MG, DAILY
     Route: 048
     Dates: start: 20160118, end: 20160124
  44. CRESTOR [Concomitant]
     Active Substance: ROSUVASTATIN CALCIUM
     Dosage: 2.5 MG, DAILY
     Route: 048
     Dates: start: 20151222, end: 20160111
  45. HIRUDOID [Concomitant]
     Active Substance: GLYCOSAMINOGLYCANS
     Dosage: 50G, FREQUENCY UNKNOWN
     Route: 061
     Dates: start: 20160229, end: 20160229
  46. G LASTA [Suspect]
     Active Substance: PEGFILGRASTIM
     Dosage: 3.6 MG, 1X/2WEEKS
     Route: 058
     Dates: start: 20160119, end: 20160119
  47. ENDOXAN [Suspect]
     Active Substance: CYCLOPHOSPHAMIDE
     Dosage: 3600 MG, DAILY
     Route: 041
     Dates: start: 20160104, end: 20160104
  48. DECADRON [Concomitant]
     Active Substance: DEXAMETHASONE
     Dosage: 1.65 MG, 2X/DAY
     Route: 041
     Dates: start: 20151221, end: 20160201
  49. SEISHOKU [Concomitant]
     Active Substance: SODIUM CHLORIDE
     Dosage: 10ML, 1X/2WEEKS
     Route: 041
     Dates: start: 20151221, end: 20160201
  50. MUCOSTA [Concomitant]
     Active Substance: REBAMIPIDE
     Dosage: 100 MG, DAILY
     Route: 048
     Dates: start: 20160215, end: 20160224
  51. MYSER [Concomitant]
     Active Substance: DIFLUPREDNATE
     Dosage: 10G, FREQUENCY UNKNOWN
     Route: 061
     Dates: start: 20160229, end: 20160229

REACTIONS (3)
  - Inappropriate schedule of drug administration [Unknown]
  - Cerebral infarction [Recovered/Resolved]
  - Interstitial lung disease [Recovered/Resolved]

NARRATIVE: CASE EVENT DATE: 20151224
